FAERS Safety Report 24632461 (Version 1)
Quarter: 2024Q4

REPORT INFORMATION
  Report Type: Spontaneous
  Country: HU (occurrence: HU)
  Receive Date: 20241118
  Receipt Date: 20241118
  Transmission Date: 20250114
  Serious: Yes (Other)
  Sender: NOVARTIS
  Company Number: HU-002147023-NVSC2024HU219382

PATIENT
  Sex: Male

DRUGS (4)
  1. OFATUMUMAB [Suspect]
     Active Substance: OFATUMUMAB
     Indication: Multiple sclerosis
     Dosage: UNK
     Route: 065
     Dates: start: 20240508
  2. BRIMONIDINE [Concomitant]
     Active Substance: BRIMONIDINE TARTRATE
     Indication: Product used for unknown indication
     Dosage: UNK
     Route: 065
     Dates: start: 20240410
  3. TIMOLOL [Concomitant]
     Active Substance: TIMOLOL\TIMOLOL MALEATE
     Indication: Product used for unknown indication
     Dosage: UNK (2X INTO THE LEFT SIDE)
     Route: 065
     Dates: start: 20240410
  4. NEPAFENAC [Concomitant]
     Active Substance: NEPAFENAC
     Indication: Product used for unknown indication
     Dosage: UNK (4X INTO THE RIGHT SIDE)
     Route: 065
     Dates: start: 20240410

REACTIONS (3)
  - Macular oedema [Unknown]
  - Respiratory symptom [Unknown]
  - Pyrexia [Unknown]

NARRATIVE: CASE EVENT DATE: 20240508
